FAERS Safety Report 19364424 (Version 1)
Quarter: 2021Q2

REPORT INFORMATION
  Report Type: Spontaneous
  Country: DE (occurrence: DE)
  Receive Date: 20210602
  Receipt Date: 20210602
  Transmission Date: 20210717
  Serious: Yes (Other)
  Sender: FDA-Public Use
  Company Number: DE-LUPIN PHARMACEUTICALS INC.-2021-08468

PATIENT
  Age: 6 Year
  Sex: Male

DRUGS (9)
  1. CYCLOSPORINE. [Concomitant]
     Active Substance: CYCLOSPORINE
     Indication: PROPHYLAXIS AGAINST GRAFT VERSUS HOST DISEASE
     Dosage: UNK
     Route: 065
  2. DARATUMUMAB [Concomitant]
     Active Substance: DARATUMUMAB
     Indication: IMMUNE THROMBOCYTOPENIA
     Dosage: 16 MILLIGRAM/KILOGRAM, STARTED ON DAY PLUS 184
     Route: 065
  3. PREDNISOLONE. [Suspect]
     Active Substance: PREDNISOLONE
     Dosage: UNK, DOSE TAPERED
     Route: 065
  4. IMMUNOGLOBULIN (IMMUNOGLOBULIN HUMAN NORMAL) [Suspect]
     Active Substance: HUMAN IMMUNOGLOBULIN G
     Indication: IMMUNE THROMBOCYTOPENIA
     Dosage: 400 MILLIGRAM/KILOGRAM, QD, FOUR DOSES OF IMMUNE?GLOBULIN 0.4G/KG/DAY
     Route: 042
  5. RITUXIMAB. [Suspect]
     Active Substance: RITUXIMAB
     Indication: IMMUNE THROMBOCYTOPENIA
     Dosage: 375 MILLIGRAM/SQ. METER, RITUXIMAB (375 MG/M 2 /DOSE, A TOTAL OF WEEKLY 6 DOSES) STARTING DAY PLUS 8
     Route: 065
  6. PREDNISOLONE. [Suspect]
     Active Substance: PREDNISOLONE
     Indication: IMMUNE THROMBOCYTOPENIA
     Dosage: 2 MILLIGRAM/KILOGRAM, QD
     Route: 065
  7. IMMUNOGLOBULIN (IMMUNOGLOBULIN HUMAN NORMAL) [Suspect]
     Active Substance: HUMAN IMMUNOGLOBULIN G
     Dosage: 1000 MILLIGRAM/KILOGRAM, HIGH?DOSE IMMUNE?GLOBULIN 1 G/KG/DOSE AND THEN THREE DOSES OF IVIG (1 G/KG/
     Route: 042
  8. METHYLPREDNISOLONE. [Suspect]
     Active Substance: METHYLPREDNISOLONE
     Indication: IMMUNE THROMBOCYTOPENIA
     Dosage: 20 MILLIGRAM/KILOGRAM, QD
     Route: 065
  9. ECULIZUMAB [Suspect]
     Active Substance: ECULIZUMAB
     Indication: IMMUNE THROMBOCYTOPENIA
     Dosage: 25 MILLIGRAM/KILOGRAM, ONE DOSE OF ECULIZUMAB (25 MG/KG)
     Route: 065

REACTIONS (2)
  - Off label use [Unknown]
  - Drug ineffective for unapproved indication [Unknown]
